FAERS Safety Report 7769490-0 (Version None)
Quarter: 2011Q3

REPORT INFORMATION
  Report Type: 
  Country: None (occurrence: None)
  Receive Date: 20110922
  Receipt Date: 20101210
  Transmission Date: 20111222
  Serious: No
  Sender: FDA-Public Use
  Company Number: US-ASTRAZENECA-2010SE18554

PATIENT
  Age: 39 Year
  Sex: Male
  Weight: 99.8 kg

DRUGS (4)
  1. BENTYL [Concomitant]
     Indication: IRRITABLE BOWEL SYNDROME
     Route: 065
  2. SEROQUEL XR [Suspect]
     Indication: SLEEP DISORDER
     Route: 048
  3. SEROQUEL XR [Suspect]
     Indication: BIPOLAR I DISORDER
     Route: 048
  4. EPITOL [Concomitant]
     Indication: BIPOLAR DISORDER
     Route: 065

REACTIONS (4)
  - TACHYPHRENIA [None]
  - DRUG INEFFECTIVE [None]
  - DRUG DOSE OMISSION [None]
  - INSOMNIA [None]
